FAERS Safety Report 5331376-9 (Version None)
Quarter: 2007Q2

REPORT INFORMATION
  Report Type: 
  Country: None (occurrence: None)
  Receive Date: 20070522
  Receipt Date: 20070511
  Transmission Date: 20071010
  Serious: Yes (Hospitalization)
  Sender: FDA-Public Use
  Company Number: US-ELI_LILLY_AND_COMPANY-US200705003309

PATIENT
  Age: 90 Year
  Sex: Female

DRUGS (2)
  1. FORTEO [Suspect]
     Dosage: UNK D/F, UNK
     Dates: start: 20060101, end: 20070501
  2. FORTEO [Suspect]
     Dates: start: 20070501

REACTIONS (1)
  - URINARY TRACT INFECTION [None]
